FAERS Safety Report 17071457 (Version 2)
Quarter: 2019Q4

REPORT INFORMATION
  Report Type: Spontaneous
  Country: US (occurrence: US)
  Receive Date: 20191125
  Receipt Date: 20191226
  Transmission Date: 20200122
  Serious: No
  Sender: FDA-Public Use
  Company Number: US-PFIZER INC-2019503038

PATIENT
  Age: 59 Year
  Sex: Male
  Weight: 54.38 kg

DRUGS (1)
  1. IRINOTECAN HCL [Suspect]
     Active Substance: IRINOTECAN HYDROCHLORIDE
     Indication: COLON CANCER
     Dosage: UNK (EVERY 2 WEEKS INFUSION)
     Dates: start: 201907, end: 20191030

REACTIONS (1)
  - Diarrhoea [Not Recovered/Not Resolved]
